FAERS Safety Report 23679948 (Version 2)
Quarter: 2024Q2

REPORT INFORMATION
  Report Type: Spontaneous
  Country: US (occurrence: US)
  Receive Date: 20240327
  Receipt Date: 20240401
  Transmission Date: 20240715
  Serious: Yes (Other)
  Sender: FDA-Public Use
  Company Number: US-BRISTOL-MYERS SQUIBB COMPANY-2024-045947

PATIENT
  Age: 72 Year
  Sex: Female
  Weight: 83.91 kg

DRUGS (17)
  1. ZEPOSIA [Suspect]
     Active Substance: OZANIMOD HYDROCHLORIDE
     Indication: Colitis ulcerative
     Dosage: MAINTENANCE DOSE 0.92. ONE CAPSULES BY MOUTH EVERY DAY
     Route: 048
     Dates: start: 202306
  2. ALBUTEROL [Concomitant]
     Active Substance: ALBUTEROL
  3. CHOLESTYRAMINE [Concomitant]
     Active Substance: CHOLESTYRAMINE
  4. DICYCLOMINE [Concomitant]
     Active Substance: DICYCLOMINE HYDROCHLORIDE
  5. HUMALOG [Concomitant]
     Active Substance: INSULIN LISPRO
     Dosage: HUMALOG SHORT ACTING?HUMALOG LONG ACTIN
  6. HYDROXYZINE [Concomitant]
     Active Substance: HYDROXYZINE HYDROCHLORIDE
     Dosage: HUMALOG SHORT ACTING?HUMALOG LONG ACTIN
  7. MONISTAT [Concomitant]
     Active Substance: MICONAZOLE NITRATE
     Dosage: HUMALOG SHORT ACTING?HUMALOG LONG ACTIN
  8. PANTOPRAZOLE [Concomitant]
     Active Substance: PANTOPRAZOLE
     Dosage: HUMALOG SHORT ACTING?HUMALOG LONG ACTIN
  9. PREMARIN [Concomitant]
     Active Substance: ESTROGENS, CONJUGATED
     Dosage: HUMALOG SHORT ACTING?HUMALOG LONG ACTIN
  10. PROLIA [Concomitant]
     Active Substance: DENOSUMAB
     Dosage: HUMALOG SHORT ACTING?HUMALOG LONG ACTIN
  11. ROSUVASTATIN [Concomitant]
     Active Substance: ROSUVASTATIN
     Dosage: HUMALOG SHORT ACTING?HUMALOG LONG ACTIN
  12. SYNTHROID [Concomitant]
     Active Substance: LEVOTHYROXINE SODIUM
     Dosage: HUMALOG SHORT ACTING?HUMALOG LONG ACTIN
  13. TRESIBA [Concomitant]
     Active Substance: INSULIN DEGLUDEC
     Dosage: HUMALOG SHORT ACTING?HUMALOG LONG ACTIN
  14. TRULICITY [Concomitant]
     Active Substance: DULAGLUTIDE
     Dosage: HUMALOG SHORT ACTING?HUMALOG LONG ACTIN
  15. VITAMIN C [Concomitant]
     Active Substance: ASCORBIC ACID
     Dosage: HUMALOG SHORT ACTING?HUMALOG LONG ACTIN
  16. VITAMIN D NOS [Concomitant]
     Active Substance: VITAMIN D NOS
     Dosage: HUMALOG SHORT ACTING?HUMALOG LONG ACTIN
  17. ZOFRAN [Concomitant]
     Active Substance: ONDANSETRON HYDROCHLORIDE
     Dosage: HUMALOG SHORT ACTING?HUMALOG LONG ACTIN

REACTIONS (1)
  - Bradycardia [Unknown]

NARRATIVE: CASE EVENT DATE: 20240314
